FAERS Safety Report 9936762 (Version 1)
Quarter: 2014Q1

REPORT INFORMATION
  Report Type: Spontaneous
  Country: US (occurrence: None)
  Receive Date: 20140107
  Receipt Date: 20140107
  Transmission Date: 20141002
  Serious: Yes (Hospitalization)
  Sender: FDA-Public Use
  Company Number: 2012AP002927

PATIENT
  Sex: Female

DRUGS (2)
  1. IBANDRONATE SODIUM [Suspect]
     Indication: OSTEOPOROSIS
     Dates: start: 20120901
  2. DRUG USE IN DIABETES [Concomitant]

REACTIONS (1)
  - Chest pain [None]
